FAERS Safety Report 5943545-5 (Version None)
Quarter: 2008Q4

REPORT INFORMATION
  Report Type: 
  Country: None (occurrence: None)
  Receive Date: 20081106
  Receipt Date: 20081027
  Transmission Date: 20090506
  Serious: Yes (Death)
  Sender: FDA-Public Use
  Company Number: AU-BAXTER-2008BH011574

PATIENT
  Age: 73 Year
  Sex: Female

DRUGS (3)
  1. DIANEAL [Suspect]
     Indication: PERITONEAL DIALYSIS
     Route: 033
     Dates: start: 20051214
  2. DIANEAL [Suspect]
     Route: 033
     Dates: start: 20051214
  3. DIANEAL [Suspect]
     Route: 033
     Dates: start: 20051214

REACTIONS (1)
  - DEATH [None]
